FAERS Safety Report 25651588 (Version 1)
Quarter: 2025Q3

REPORT INFORMATION
  Report Type: Spontaneous
  Country: US (occurrence: US)
  Receive Date: 20250806
  Receipt Date: 20250806
  Transmission Date: 20251020
  Serious: Yes (Other)
  Sender: MYLAN
  Company Number: US-MYLANLABS-2025M1066424

PATIENT
  Age: 78 Year

DRUGS (24)
  1. EPLERENONE [Suspect]
     Active Substance: EPLERENONE
     Indication: Hypertension
     Dosage: 50 MILLIGRAM, BID (2 TIMES A DAY)
     Dates: start: 2017
  2. EPLERENONE [Suspect]
     Active Substance: EPLERENONE
     Dosage: 50 MILLIGRAM, BID (2 TIMES A DAY)
     Route: 065
     Dates: start: 2017
  3. EPLERENONE [Suspect]
     Active Substance: EPLERENONE
     Dosage: 50 MILLIGRAM, BID (2 TIMES A DAY)
     Route: 065
     Dates: start: 2017
  4. EPLERENONE [Suspect]
     Active Substance: EPLERENONE
     Dosage: 50 MILLIGRAM, BID (2 TIMES A DAY)
     Dates: start: 2017
  5. NEBIVOLOL [Concomitant]
     Active Substance: NEBIVOLOL
     Indication: Hypertension
     Dosage: 20 MILLIGRAM, BID (2 TIMES A DAY)
  6. NEBIVOLOL [Concomitant]
     Active Substance: NEBIVOLOL
     Dosage: 20 MILLIGRAM, BID (2 TIMES A DAY)
     Route: 065
  7. NEBIVOLOL [Concomitant]
     Active Substance: NEBIVOLOL
     Dosage: 20 MILLIGRAM, BID (2 TIMES A DAY)
     Route: 065
  8. NEBIVOLOL [Concomitant]
     Active Substance: NEBIVOLOL
     Dosage: 20 MILLIGRAM, BID (2 TIMES A DAY)
  9. TRAMADOL [Concomitant]
     Active Substance: TRAMADOL
     Indication: Back pain
  10. TRAMADOL [Concomitant]
     Active Substance: TRAMADOL
     Route: 065
  11. TRAMADOL [Concomitant]
     Active Substance: TRAMADOL
     Route: 065
  12. TRAMADOL [Concomitant]
     Active Substance: TRAMADOL
  13. OMEPRAZOLE [Concomitant]
     Active Substance: OMEPRAZOLE
     Dosage: 40 MILLIGRAM, BID (2 TIMES A DAY)
  14. OMEPRAZOLE [Concomitant]
     Active Substance: OMEPRAZOLE
     Dosage: 40 MILLIGRAM, BID (2 TIMES A DAY)
     Route: 065
  15. OMEPRAZOLE [Concomitant]
     Active Substance: OMEPRAZOLE
     Dosage: 40 MILLIGRAM, BID (2 TIMES A DAY)
     Route: 065
  16. OMEPRAZOLE [Concomitant]
     Active Substance: OMEPRAZOLE
     Dosage: 40 MILLIGRAM, BID (2 TIMES A DAY)
  17. INDAPAMIDE [Concomitant]
     Active Substance: INDAPAMIDE
     Indication: Hypertension
     Route: 065
  18. INDAPAMIDE [Concomitant]
     Active Substance: INDAPAMIDE
  19. INDAPAMIDE [Concomitant]
     Active Substance: INDAPAMIDE
  20. INDAPAMIDE [Concomitant]
     Active Substance: INDAPAMIDE
     Route: 065
  21. INDAPAMIDE [Concomitant]
     Active Substance: INDAPAMIDE
     Dosage: UNK, QOD (EVERY OTHER DAY)
     Route: 065
  22. INDAPAMIDE [Concomitant]
     Active Substance: INDAPAMIDE
     Dosage: UNK, QOD (EVERY OTHER DAY)
  23. INDAPAMIDE [Concomitant]
     Active Substance: INDAPAMIDE
     Dosage: UNK, QOD (EVERY OTHER DAY)
  24. INDAPAMIDE [Concomitant]
     Active Substance: INDAPAMIDE
     Dosage: UNK, QOD (EVERY OTHER DAY)
     Route: 065

REACTIONS (11)
  - Chronic kidney disease [Unknown]
  - Memory impairment [Unknown]
  - Peripheral swelling [Unknown]
  - Inflammation [Unknown]
  - Gait disturbance [Unknown]
  - Nail disorder [Unknown]
  - Reaction to azo-dyes [Unknown]
  - Muscle spasms [Unknown]
  - Pruritus [Not Recovered/Not Resolved]
  - Therapeutic product effect decreased [Unknown]
  - Product substitution issue [Unknown]
